FAERS Safety Report 11800599 (Version 2)
Quarter: 2015Q4

REPORT INFORMATION
  Report Type: Spontaneous
  Country: US (occurrence: US)
  Receive Date: 20151204
  Receipt Date: 20151221
  Transmission Date: 20160305
  Serious: Yes (Other)
  Sender: FDA-Public Use
  Company Number: US-ROCHE-1671305

PATIENT
  Age: 46 Year
  Sex: Male
  Weight: 85 kg

DRUGS (17)
  1. RITUXAN [Suspect]
     Active Substance: RITUXIMAB
     Indication: MANTLE CELL LYMPHOMA
     Dosage: 6 CYCLES
     Route: 042
     Dates: start: 20140922, end: 20150210
  2. RITUXAN [Suspect]
     Active Substance: RITUXIMAB
     Dosage: FOUR TIMES, 02/JUL/2015, 09/JUL/2015, 16/JUL/2015, 31/AUG/2015, 14/SEP/2015, 19/OCT/2015
     Route: 042
     Dates: start: 20150625
  3. BACTRIM [Concomitant]
     Active Substance: SULFAMETHOXAZOLE\TRIMETHOPRIM
  4. CYTARABINE. [Suspect]
     Active Substance: CYTARABINE
     Indication: METASTASES TO MENINGES
     Dosage: 15/SEP/2015, 20/OCT/2015
     Route: 065
     Dates: start: 20150818
  5. PERCOCET [Concomitant]
     Active Substance: ACETAMINOPHEN\OXYCODONE HYDROCHLORIDE
  6. IMBRUVICA [Suspect]
     Active Substance: IBRUTINIB
     Indication: MANTLE CELL LYMPHOMA
     Route: 048
     Dates: start: 20150523
  7. WELLBUTRIN [Concomitant]
     Active Substance: BUPROPION HYDROCHLORIDE
  8. ALLOPURINOL. [Concomitant]
     Active Substance: ALLOPURINOL
  9. COMPAZINE [Concomitant]
     Active Substance: PROCHLORPERAZINE MALEATE
  10. LIPITOR [Concomitant]
     Active Substance: ATORVASTATIN CALCIUM
  11. LEVOFLOXACIN. [Concomitant]
     Active Substance: LEVOFLOXACIN
  12. PROTONIX (UNITED STATES) [Concomitant]
  13. DOCUSATE [Concomitant]
     Active Substance: DOCUSATE
  14. ACYCLOVIR. [Concomitant]
     Active Substance: ACYCLOVIR
  15. METHOTREXATE [Suspect]
     Active Substance: METHOTREXATE
     Indication: METASTASES TO MENINGES
     Dosage: 15/SEP/2015, 01/OCT/2015, 20/OCT/2015
     Route: 065
     Dates: start: 20150818
  16. BENDAMUSTINE [Concomitant]
     Active Substance: BENDAMUSTINE
     Indication: MANTLE CELL LYMPHOMA
     Route: 065
     Dates: start: 20140922, end: 20150210
  17. AMBIEN [Concomitant]
     Active Substance: ZOLPIDEM TARTRATE

REACTIONS (10)
  - Skin mass [Recovered/Resolved]
  - Lymphadenopathy [Unknown]
  - Tachycardia [Unknown]
  - Neutropenia [Unknown]
  - Chills [Unknown]
  - Thrombocytopenia [Unknown]
  - Rash [Recovered/Resolved]
  - Insomnia [Unknown]
  - Metastases to meninges [Recovered/Resolved]
  - Anxiety [Unknown]

NARRATIVE: CASE EVENT DATE: 20150727
